FAERS Safety Report 11181954 (Version 1)
Quarter: 2015Q2

REPORT INFORMATION
  Report Type: Spontaneous
  Country: CH (occurrence: GB)
  Receive Date: 20150611
  Receipt Date: 20150611
  Transmission Date: 20150821
  Serious: Yes (Congenital Anomaly)
  Sender: FDA-Public Use
  Company Number: CH-LPDUSPRD-20150423

PATIENT

DRUGS (1)
  1. FERINJECT [Suspect]
     Active Substance: FERRIC CARBOXYMALTOSE
     Dosage: 700 MG
     Route: 064
     Dates: start: 20141013

REACTIONS (2)
  - Cardiac murmur [Not Recovered/Not Resolved]
  - Foetal exposure during pregnancy [Unknown]
